FAERS Safety Report 24444226 (Version 2)
Quarter: 2024Q4

REPORT INFORMATION
  Report Type: Report from Study
  Country: US (occurrence: US)
  Receive Date: 20241016
  Receipt Date: 20241017
  Transmission Date: 20250115
  Serious: No
  Sender: ROCHE
  Company Number: US-ROCHE-2820510

PATIENT
  Age: 35 Year
  Sex: Female

DRUGS (20)
  1. RITUXAN [Suspect]
     Active Substance: RITUXIMAB
     Indication: Multiple sclerosis
     Dosage: INFUSE 1000 MG, EVERY 4-6 MONTHS, 100 MG /10 ML, ANTICIPATED DATE OF TREATMENT: 08/JUN/2021
     Route: 041
  2. NEURONTIN [Concomitant]
     Active Substance: GABAPENTIN
     Route: 048
     Dates: start: 20210202
  3. ERGOCALCIFEROL [Concomitant]
     Active Substance: ERGOCALCIFEROL
     Dates: start: 20201118
  4. NORVASC [Concomitant]
     Active Substance: AMLODIPINE BESYLATE
     Route: 048
     Dates: start: 20200615
  5. B12 [Concomitant]
     Route: 048
     Dates: start: 20200615
  6. RITALIN [Concomitant]
     Active Substance: METHYLPHENIDATE HYDROCHLORIDE
     Route: 048
     Dates: start: 20191107
  7. LAMOTRIGINE [Concomitant]
     Active Substance: LAMOTRIGINE
     Route: 048
     Dates: start: 20190720
  8. XANAX [Concomitant]
     Active Substance: ALPRAZOLAM
     Route: 048
     Dates: start: 20180613
  9. NEXPLANON [Concomitant]
     Active Substance: ETONOGESTREL
     Dates: start: 20170810
  10. GABAPENTIN [Concomitant]
     Active Substance: GABAPENTIN
  11. XANAX [Concomitant]
     Active Substance: ALPRAZOLAM
  12. METHYLPHENIDATE [Concomitant]
     Active Substance: METHYLPHENIDATE
  13. ZOLPIDEM TARTRATE [Concomitant]
     Active Substance: ZOLPIDEM TARTRATE
  14. WELLBUTRIN [Concomitant]
     Active Substance: BUPROPION HYDROCHLORIDE
  15. NEXPLANON [Concomitant]
     Active Substance: ETONOGESTREL
  16. CLARITIN [Concomitant]
     Active Substance: LORATADINE
  17. ALPRAZOLAM [Concomitant]
     Active Substance: ALPRAZOLAM
  18. METHYLPHENIDATE [Concomitant]
     Active Substance: METHYLPHENIDATE
  19. HCL [Concomitant]
  20. ZOLPIDEM [Concomitant]
     Active Substance: ZOLPIDEM TARTRATE

REACTIONS (2)
  - Off label use [Unknown]
  - No adverse event [Unknown]
